FAERS Safety Report 18226752 (Version 2)
Quarter: 2020Q3

REPORT INFORMATION
  Report Type: Report from Study
  Country: BR (occurrence: BR)
  Receive Date: 20200903
  Receipt Date: 20200911
  Transmission Date: 20201103
  Serious: Yes (Disabling, Other)
  Sender: FDA-Public Use
  Company Number: NVSC2020BR241295

PATIENT
  Sex: Male
  Weight: 90 kg

DRUGS (3)
  1. ENTRESTO [Suspect]
     Active Substance: SACUBITRIL\VALSARTAN
     Indication: CARDIAC FAILURE
     Dosage: 50 MG, QD, START DATE (ABOUT 6 MONTHS AGO)
     Route: 048
  2. ENTRESTO [Suspect]
     Active Substance: SACUBITRIL\VALSARTAN
     Dosage: UNK
     Route: 065
  3. INSULIN [Concomitant]
     Active Substance: INSULIN NOS
     Indication: DIABETES MELLITUS
     Dosage: 26 IU, QD (ONCE A DAY IN THE MORNING, DRUG STARTED FROM 5 YEARS AGO)
     Route: 065

REACTIONS (7)
  - Leukaemia [Unknown]
  - Myalgia [Unknown]
  - Incorrect dose administered [Unknown]
  - Dysstasia [Unknown]
  - Movement disorder [Recovered/Resolved]
  - Back pain [Unknown]
  - Arteriovenous fistula [Not Recovered/Not Resolved]
